FAERS Safety Report 15470532 (Version 3)
Quarter: 2019Q1

REPORT INFORMATION
  Report Type: Report from Study
  Country: CO (occurrence: CO)
  Receive Date: 20181005
  Receipt Date: 20190126
  Transmission Date: 20190417
  Serious: Yes (Death, Hospitalization)
  Sender: FDA-Public Use
  Company Number: PHHY2018CO114275

PATIENT
  Age: 65 Year
  Sex: Female

DRUGS (1)
  1. ENTRESTO [Suspect]
     Active Substance: SACUBITRIL\VALSARTAN
     Indication: CARDIAC FAILURE
     Dosage: 50 MG (24 MG SACUBITRIL, 26 MG VALSARTAN), Q12H
     Route: 048
     Dates: start: 20180728

REACTIONS (7)
  - Inflammation [Unknown]
  - Weight decreased [Unknown]
  - Death [Fatal]
  - Cardiac disorder [Unknown]
  - Gastrointestinal disorder [Unknown]
  - Fluid retention [Unknown]
  - Feeding disorder [Unknown]

NARRATIVE: CASE EVENT DATE: 20181121
